FAERS Safety Report 9469850 (Version 1)
Quarter: 2013Q3

REPORT INFORMATION
  Report Type: Spontaneous
  Country: US (occurrence: None)
  Receive Date: 20130820
  Receipt Date: 20130820
  Transmission Date: 20140515
  Serious: Yes (Life-Threatening, Hospitalization, Other)
  Sender: FDA-Public Use
  Company Number: None

PATIENT
  Age: 36 Year
  Sex: Female
  Weight: 52.16 kg

DRUGS (1)
  1. GIANVI [Suspect]
     Indication: ENDOMETRIOSIS
     Dosage: 1 TAB
     Route: 048

REACTIONS (4)
  - Pulmonary embolism [None]
  - Tachycardia [None]
  - Dyspnoea [None]
  - Blood potassium decreased [None]
